FAERS Safety Report 9499455 (Version 2)
Quarter: 2013Q3

REPORT INFORMATION
  Report Type: Spontaneous
  Country: GB (occurrence: None)
  Receive Date: 20130903
  Receipt Date: 20130912
  Transmission Date: 20140515
  Serious: Yes (Other)
  Sender: FDA-Public Use
  Company Number: AUR-APL-2013-07226

PATIENT
  Age: 30 Year
  Sex: Female

DRUGS (3)
  1. RIBAVIRIN [Suspect]
     Indication: HEPATITIS C
     Dosage: (2 IN 1 D), ORAL
     Route: 048
     Dates: start: 20121116
  2. INCIVO [Suspect]
     Indication: HEPATITIS C
     Dosage: (3 IN 1 D), ORAL
     Route: 048
     Dates: start: 20121116
  3. INTERFERON [Suspect]
     Indication: HEPATITIS C
     Dosage: (1 IN 1 WK), UNKNOWN
     Dates: start: 20121116

REACTIONS (13)
  - Hallucination [None]
  - Haemorrhoids [None]
  - Anxiety [None]
  - Insomnia [None]
  - Fatigue [None]
  - Pruritus [None]
  - Nausea [None]
  - Diarrhoea [None]
  - Panic attack [None]
  - Anaemia [None]
  - Malaise [None]
  - Cough [None]
  - Inappropriate schedule of drug administration [None]
